FAERS Safety Report 14215985 (Version 1)
Quarter: 2017Q4

REPORT INFORMATION
  Report Type: Spontaneous
  Country: US (occurrence: US)
  Receive Date: 20171122
  Receipt Date: 20171122
  Transmission Date: 20180321
  Serious: Yes (Other)
  Sender: FDA-Public Use
  Company Number: US-REGENERON PHARMACEUTICALS, INC.-2017-26721

PATIENT

DRUGS (12)
  1. LEVEMIR [Concomitant]
     Active Substance: INSULIN DETEMIR
     Indication: PRODUCT USED FOR UNKNOWN INDICATION
     Dosage: TAKING FOR 10 YEARS
  2. EYLEA [Suspect]
     Active Substance: AFLIBERCEPT
     Indication: RETINAL DETACHMENT
     Dosage: MONTHLY, BOTH EYES (OU)
     Route: 031
  3. CLARITIN [Concomitant]
     Active Substance: LORATADINE
     Indication: PRODUCT USED FOR UNKNOWN INDICATION
     Dosage: TAKING FOR 3 YEARS
  4. FLAXSEED OIL                       /01649403/ [Concomitant]
     Indication: PRODUCT USED FOR UNKNOWN INDICATION
     Dosage: 1000 MG, TAKING FOR A COUPLE YEARS
  5. GLIPIZIDE. [Concomitant]
     Active Substance: GLIPIZIDE
     Indication: PRODUCT USED FOR UNKNOWN INDICATION
     Dosage: TAKING FOR 20 YEARS
  6. METFORMIN [Concomitant]
     Active Substance: METFORMIN HYDROCHLORIDE
     Indication: PRODUCT USED FOR UNKNOWN INDICATION
     Dosage: TAKING FOR 20 YEARS
  7. FIBER [Concomitant]
     Active Substance: PSYLLIUM HUSK
     Indication: PRODUCT USED FOR UNKNOWN INDICATION
     Dosage: TAKING FOR 4-5 YEARS, AS NECESSARY
  8. INSULIN [Concomitant]
     Active Substance: INSULIN NOS
     Indication: PRODUCT USED FOR UNKNOWN INDICATION
     Dosage: TAKING FOR 8-10 YEARS
  9. CRESTOR [Suspect]
     Active Substance: ROSUVASTATIN CALCIUM
     Indication: PRODUCT USED FOR UNKNOWN INDICATION
     Dosage: UNK
  10. HUMALOG [Concomitant]
     Active Substance: INSULIN LISPRO
     Indication: PRODUCT USED FOR UNKNOWN INDICATION
     Dosage: SLIDING SCALE, AS NECESSARY, TAKING FOR 2-3 YEARS
  11. LISINOPRIL. [Concomitant]
     Active Substance: LISINOPRIL
     Indication: PRODUCT USED FOR UNKNOWN INDICATION
     Dosage: 5 MG, AT BEDTIME, TAKING FOR 3 YEARS
  12. VITAMIN C WITH ROSE HIPS           /02223901/ [Concomitant]
     Indication: PRODUCT USED FOR UNKNOWN INDICATION
     Dosage: TAKING FOR 6-8 YEARS

REACTIONS (10)
  - Oropharyngeal blistering [Unknown]
  - Bacterial infection [Unknown]
  - Off label use [Unknown]
  - Eye discharge [Unknown]
  - Rhinorrhoea [Unknown]
  - Dizziness [Unknown]
  - Sinus pain [Unknown]
  - Hypersensitivity [Recovering/Resolving]
  - Nausea [Unknown]
  - Arthritis [Unknown]

NARRATIVE: CASE EVENT DATE: 201707
